FAERS Safety Report 11992027 (Version 1)
Quarter: 2016Q1

REPORT INFORMATION
  Report Type: Spontaneous
  Country: US (occurrence: US)
  Receive Date: 20160203
  Receipt Date: 20160203
  Transmission Date: 20160526
  Serious: No
  Sender: FDA-Public Use
  Company Number: US-JNJFOC-20151210861

PATIENT
  Age: 80 Year
  Sex: Female
  Weight: 48.54 kg

DRUGS (1)
  1. TYLENOL EXTRA STRENGTH [Suspect]
     Active Substance: ACETAMINOPHEN
     Indication: MYALGIA
     Dosage: 2 TABLETS DAILY-BED AT NIGHT.
     Route: 048
     Dates: start: 20151009

REACTIONS (1)
  - Intentional product use issue [Unknown]
